FAERS Safety Report 17080488 (Version 4)
Quarter: 2020Q1

REPORT INFORMATION
  Report Type: Report from Study
  Country: CN (occurrence: CN)
  Receive Date: 20191127
  Receipt Date: 20200207
  Transmission Date: 20200409
  Serious: Yes (Hospitalization, Other)
  Sender: FDA-Public Use
  Company Number: NVSC2019CN046550

PATIENT
  Sex: Female
  Weight: 57 kg

DRUGS (9)
  1. LETROZOLE. [Suspect]
     Active Substance: LETROZOLE
     Dosage: UNK
     Route: 048
     Dates: start: 20191029
  2. ABEMACICLIB [Suspect]
     Active Substance: ABEMACICLIB
     Indication: INVASIVE DUCTAL BREAST CARCINOMA
     Dosage: 150 MG, BID
     Route: 048
     Dates: start: 20190516, end: 20191010
  3. LETROZOLE. [Suspect]
     Active Substance: LETROZOLE
     Indication: INVASIVE DUCTAL BREAST CARCINOMA
     Dosage: 2.5 MG, QD
     Route: 048
     Dates: start: 20190517
  4. ABEMACICLIB [Suspect]
     Active Substance: ABEMACICLIB
     Dosage: UNK
     Route: 048
     Dates: start: 20191110
  5. ABEMACICLIB [Suspect]
     Active Substance: ABEMACICLIB
     Dosage: 100 MG, BID
     Route: 048
     Dates: start: 20191111
  6. LEUPROLIDE [Suspect]
     Active Substance: LEUPROLIDE
     Dosage: UNK
     Route: 058
     Dates: start: 20191029
  7. NIFEDIPINE. [Concomitant]
     Active Substance: NIFEDIPINE
     Indication: PRODUCT USED FOR UNKNOWN INDICATION
     Dosage: UNK
     Route: 065
     Dates: start: 20191029
  8. TELMISARTAN. [Concomitant]
     Active Substance: TELMISARTAN
     Indication: PRODUCT USED FOR UNKNOWN INDICATION
     Dosage: UNK
     Route: 065
     Dates: start: 20191010
  9. LEUPROLIDE [Suspect]
     Active Substance: LEUPROLIDE
     Indication: INVASIVE DUCTAL BREAST CARCINOMA
     Dosage: 3.75 MG, Q4W
     Route: 058
     Dates: start: 20190517

REACTIONS (6)
  - Mitral valve incompetence [Unknown]
  - Left ventricular hypertrophy [Unknown]
  - Coronary artery disease [Recovered/Resolved]
  - Hypertension [Unknown]
  - Tricuspid valve incompetence [Unknown]
  - Anaemia [Not Recovered/Not Resolved]

NARRATIVE: CASE EVENT DATE: 20190831
